FAERS Safety Report 11742151 (Version 1)
Quarter: 2015Q4

REPORT INFORMATION
  Report Type: Spontaneous
  Country: US (occurrence: US)
  Receive Date: 20151116
  Receipt Date: 20151116
  Transmission Date: 20160304
  Serious: No
  Sender: FDA-Public Use
  Company Number: US-ACTELION PHARMACEUTICALS US, INC.-A-NJ2014-110544

PATIENT
  Age: 69 Year
  Sex: Male

DRUGS (4)
  1. TYVASO [Concomitant]
     Active Substance: TREPROSTINIL
  2. RIOCIGUAT [Concomitant]
     Active Substance: RIOCIGUAT
  3. TRACLEER [Suspect]
     Active Substance: BOSENTAN
     Indication: PULMONARY ARTERIAL HYPERTENSION
     Dosage: UNK
     Route: 048
  4. COUMADIN [Concomitant]
     Active Substance: WARFARIN SODIUM

REACTIONS (11)
  - Oedema peripheral [Unknown]
  - Vision blurred [Unknown]
  - Asthenia [Unknown]
  - Orthostatic hypotension [Unknown]
  - Fatigue [Unknown]
  - Dyspnoea [Unknown]
  - Bedridden [Unknown]
  - Decreased appetite [Unknown]
  - Restless legs syndrome [Unknown]
  - Pain in extremity [Unknown]
  - Dizziness [Unknown]
